FAERS Safety Report 5701125-0 (Version None)
Quarter: 2008Q2

REPORT INFORMATION
  Report Type: 
  Country: None (occurrence: None)
  Receive Date: 20080410
  Receipt Date: 20080401
  Transmission Date: 20081010
  Serious: Yes (Death, Hospitalization)
  Sender: FDA-Public Use
  Company Number: FR-PFIZER INC-2005052322

PATIENT
  Sex: Male
  Weight: 29.5 kg

DRUGS (7)
  1. SU-011,248 [Suspect]
     Indication: GASTROINTESTINAL STROMAL TUMOUR
     Route: 048
     Dates: start: 20050126, end: 20050326
  2. SKENAN [Concomitant]
     Route: 048
     Dates: start: 20041229, end: 20050329
  3. GLIMEPIRIDE [Concomitant]
     Route: 048
  4. OMEPRAZOLE [Concomitant]
     Route: 048
  5. EPOGEN [Concomitant]
     Route: 048
     Dates: start: 20050108, end: 20050325
  6. SOLU-MEDROL [Concomitant]
     Route: 048
     Dates: start: 20041216, end: 20050328
  7. TPN [Concomitant]
     Dates: start: 20050126, end: 20050328

REACTIONS (2)
  - HEPATIC ENCEPHALOPATHY [None]
  - TUMOUR HAEMORRHAGE [None]
